FAERS Safety Report 7755742-7 (Version None)
Quarter: 2011Q3

REPORT INFORMATION
  Report Type: 
  Country: None (occurrence: None)
  Receive Date: 20110916
  Receipt Date: 20110909
  Transmission Date: 20111222
  Serious: Yes (Death)
  Sender: FDA-Public Use
  Company Number: PHFR2011GB05083

PATIENT
  Sex: Male
  Weight: 71.6 kg

DRUGS (1)
  1. NILOTINIB [Suspect]
     Indication: GASTROINTESTINAL STROMAL TUMOUR
     Dosage: 800 MG/DAY
     Route: 048
     Dates: start: 20100708, end: 20110317

REACTIONS (2)
  - ABDOMINAL MASS [None]
  - GASTROINTESTINAL STROMAL TUMOUR [None]
